FAERS Safety Report 7884082-0 (Version None)
Quarter: 2011Q4

REPORT INFORMATION
  Report Type: 
  Country: None (occurrence: None)
  Receive Date: 20111102
  Receipt Date: 20111024
  Transmission Date: 20120403
  Serious: Yes (Hospitalization)
  Sender: FDA-Public Use
  Company Number: IT-TEVA-307298ISR

PATIENT
  Sex: Male

DRUGS (3)
  1. PERINDOPRIL ERBUMINE [Suspect]
  2. METFORMINA CLOROIDRATO [Suspect]
  3. ACIDO ACETILSALICILICO [Suspect]

REACTIONS (1)
  - ANAEMIA [None]
